FAERS Safety Report 24309070 (Version 3)
Quarter: 2024Q3

REPORT INFORMATION
  Report Type: Spontaneous
  Country: BR (occurrence: BR)
  Receive Date: 20240911
  Receipt Date: 20240920
  Transmission Date: 20241017
  Serious: No
  Sender: PFIZER
  Company Number: BR-PFIZER INC-202400250804

PATIENT
  Age: 73 Year
  Sex: Female
  Weight: 54.8 kg

DRUGS (2)
  1. ADALIMUMAB [Suspect]
     Active Substance: ADALIMUMAB
     Indication: Rheumatoid arthritis
     Dosage: 40 MG, 2X/WEEK
     Route: 058
     Dates: start: 20240624
  2. ROMOSOZUMAB [Concomitant]
     Active Substance: ROMOSOZUMAB
     Indication: Rheumatoid arthritis
     Dosage: 180 MG, MONTHLY
     Route: 058

REACTIONS (2)
  - Device mechanical issue [Unknown]
  - Injection site pain [Recovered/Resolved]

NARRATIVE: CASE EVENT DATE: 20240904
